FAERS Safety Report 11893599 (Version 1)
Quarter: 2016Q1

REPORT INFORMATION
  Report Type: Spontaneous
  Country: US (occurrence: US)
  Receive Date: 20160106
  Receipt Date: 20160106
  Transmission Date: 20160526
  Serious: Yes (Other)
  Sender: FDA-Public Use
  Company Number: US-SA-2015SA221998

PATIENT
  Age: 100 Year
  Sex: Male

DRUGS (1)
  1. ALLEGRA-D [Suspect]
     Active Substance: FEXOFENADINE\PSEUDOEPHEDRINE
     Indication: SINUS DISORDER
     Dosage: TAKEN FROM: ABOUT 3 WEEKS AGO?PRODUCT STOP DATE: 12 DAYS AGO?DOSE: 180 MG/ 240 MG
     Route: 048

REACTIONS (3)
  - Wrong technique in product usage process [Unknown]
  - Memory impairment [Not Recovered/Not Resolved]
  - Urinary retention [Not Recovered/Not Resolved]
